FAERS Safety Report 19747154 (Version 15)
Quarter: 2023Q1

REPORT INFORMATION
  Report Type: Spontaneous
  Country: CA (occurrence: CA)
  Receive Date: 20210826
  Receipt Date: 20230316
  Transmission Date: 20230417
  Serious: Yes (Other)
  Sender: FDA-Public Use
  Company Number: CA-CELLTRION INC.-2021CA011657

PATIENT

DRUGS (31)
  1. INFLECTRA [Suspect]
     Active Substance: INFLIXIMAB-DYYB
     Indication: Crohn^s disease
     Dosage: 590 MG, WEEK 0, 2, 6, THEN EVERY 8 WEEKS
     Route: 041
     Dates: start: 20210625
  2. INFLECTRA [Suspect]
     Active Substance: INFLIXIMAB-DYYB
     Dosage: 590 MG, EVERY 8 WEEKS
     Route: 041
     Dates: start: 20210709
  3. INFLECTRA [Suspect]
     Active Substance: INFLIXIMAB-DYYB
     Dosage: 590 MG, WEEK 0, 2, 6, THEN EVERY 8 WEEKS
     Route: 041
     Dates: start: 20210806
  4. INFLECTRA [Suspect]
     Active Substance: INFLIXIMAB-DYYB
     Dosage: 590 MG, WEEK 0, 2, 6, THEN EVERY 8 WEEKS
     Route: 041
     Dates: start: 20210806
  5. INFLECTRA [Suspect]
     Active Substance: INFLIXIMAB-DYYB
     Dosage: 590 MG, WEEK 0, 2, 6, THEN EVERY 8 WEEKS
     Route: 041
     Dates: start: 20210806
  6. INFLECTRA [Suspect]
     Active Substance: INFLIXIMAB-DYYB
     Dosage: 590 MG, WEEK 0, 2, 6, THEN EVERY 8 WEEKS
     Route: 041
     Dates: start: 20210930
  7. INFLECTRA [Suspect]
     Active Substance: INFLIXIMAB-DYYB
     Dosage: 590 MG, WEEK 0, 2, 6, THEN EVERY 8 WEEKS
     Route: 041
     Dates: start: 20211126
  8. INFLECTRA [Suspect]
     Active Substance: INFLIXIMAB-DYYB
     Dosage: 590 MG, WEEK 0, 2, 6, THEN EVERY 8 WEEKS
     Route: 041
     Dates: start: 20220121
  9. INFLECTRA [Suspect]
     Active Substance: INFLIXIMAB-DYYB
     Dosage: 590 MG, WEEK 0, 2, 6, THEN EVERY 8 WEEKS
     Route: 041
     Dates: start: 20220407
  10. INFLECTRA [Suspect]
     Active Substance: INFLIXIMAB-DYYB
     Dosage: 590 MG, SUPPOSED TO RECEIVE 5 MG/KG , EVERY 8 WEEKS
     Route: 042
     Dates: start: 20220602
  11. INFLECTRA [Suspect]
     Active Substance: INFLIXIMAB-DYYB
     Dosage: 590 MG, SUPPOSED TO RECEIVE 5 MG/KG, EVERY 8 WEEKS
     Route: 042
     Dates: start: 20220728
  12. INFLECTRA [Suspect]
     Active Substance: INFLIXIMAB-DYYB
     Dosage: 5 MG/KG, EVERY 8 WEEKS
     Route: 042
     Dates: start: 20220922
  13. INFLECTRA [Suspect]
     Active Substance: INFLIXIMAB-DYYB
     Dosage: 5 MG/KG, EVERY 8 WEEKS
     Route: 042
     Dates: start: 20230113
  14. INFLECTRA [Suspect]
     Active Substance: INFLIXIMAB-DYYB
     Dosage: 585 MG, EVERY 8 WEEKS
     Route: 042
     Dates: start: 20230308
  15. AZATHIOPRINE [Concomitant]
     Active Substance: AZATHIOPRINE
     Dosage: UNK
  16. AZATHIOPRINE [Concomitant]
     Active Substance: AZATHIOPRINE
     Dosage: 50 MG,FREQUENCY: NOT PROVIDED
     Route: 065
     Dates: start: 2019
  17. ATENOLOL [Concomitant]
     Active Substance: ATENOLOL
     Dosage: UNK
  18. ALLOPURINOL [Concomitant]
     Active Substance: ALLOPURINOL
     Dosage: 1 DF, MORE DOSAGE INFO: NOT PROVIDED
     Route: 065
     Dates: start: 2021
  19. AMLODIPINE [Concomitant]
     Active Substance: AMLODIPINE BESYLATE
     Dosage: UNK
  20. ASPIRIN [Concomitant]
     Active Substance: ASPIRIN
     Dosage: UNK
  21. BUDESONIDE [Concomitant]
     Active Substance: BUDESONIDE
     Dosage: UNK
  22. BUPROPION [Concomitant]
     Active Substance: BUPROPION
     Dosage: UNK
  23. CANDESARTAN [Concomitant]
     Active Substance: CANDESARTAN
     Dosage: UNK
  24. CHLORTHALIDONE [Concomitant]
     Active Substance: CHLORTHALIDONE
     Dosage: UNK
  25. COLCHICINE [Concomitant]
     Active Substance: COLCHICINE
     Dosage: UNK
  26. EMPAGLIFLOZIN [Concomitant]
     Active Substance: EMPAGLIFLOZIN
     Dosage: UNK
  27. IMURAN [Concomitant]
     Active Substance: AZATHIOPRINE
     Dosage: 50 MG,FREQUENCY: NOT PROVIDED
     Route: 065
     Dates: start: 2019
  28. METFORMIN [Concomitant]
     Active Substance: METFORMIN HYDROCHLORIDE
     Indication: Diabetes mellitus
     Dosage: 1 DF
     Dates: start: 2021
  29. PREGABALIN [Concomitant]
     Active Substance: PREGABALIN
     Dosage: UNK
  30. HERBALS\TURMERIC [Concomitant]
     Active Substance: HERBALS\TURMERIC
     Dosage: UNK
  31. VITAMIN D NOS [Concomitant]
     Active Substance: VITAMIN D NOS
     Dosage: UNK

REACTIONS (10)
  - Rectal haemorrhage [Recovered/Resolved]
  - Therapeutic response shortened [Unknown]
  - Condition aggravated [Not Recovered/Not Resolved]
  - Arthralgia [Not Recovered/Not Resolved]
  - COVID-19 [Recovered/Resolved]
  - Mobility decreased [Not Recovered/Not Resolved]
  - Gouty arthritis [Not Recovered/Not Resolved]
  - Nasal congestion [Recovered/Resolved]
  - Cough [Recovered/Resolved]
  - Anal fissure [Unknown]

NARRATIVE: CASE EVENT DATE: 20210801
